FAERS Safety Report 9382401 (Version 2)
Quarter: 2013Q4

REPORT INFORMATION
  Report Type: Spontaneous
  Country: IT (occurrence: IT)
  Receive Date: 20130703
  Receipt Date: 20131103
  Transmission Date: 20140711
  Serious: Yes (Hospitalization)
  Sender: FDA-Public Use
  Company Number: IT-ELI_LILLY_AND_COMPANY-IT201306008176

PATIENT
  Age: 81 Year
  Sex: Male

DRUGS (8)
  1. HUMALOG LISPRO [Suspect]
     Indication: TYPE 2 DIABETES MELLITUS
     Dosage: 10 IU, QD
     Route: 058
     Dates: start: 20120117, end: 20130117
  2. TIMOLOL [Interacting]
     Indication: GLAUCOMA
     Dosage: 1 GTT, QD
     Route: 047
     Dates: start: 20120117, end: 20130117
  3. LANTUS [Interacting]
     Indication: TYPE 2 DIABETES MELLITUS
     Dosage: UNK
     Route: 058
     Dates: start: 20120117, end: 20130117
  4. BIMATOPROST [Concomitant]
     Indication: GLAUCOMA
     Dosage: 1 GTT, UNK
     Route: 047
  5. LASIX [Concomitant]
     Dosage: 25 MG, UNK
     Route: 048
  6. XATRAL [Concomitant]
     Indication: BENIGN PROSTATIC HYPERPLASIA
     Route: 048
  7. KCL-RETARD [Concomitant]
     Dosage: 600 MG, UNK
     Route: 048
  8. FRAGMIN [Concomitant]
     Indication: ATRIAL FIBRILLATION
     Dosage: 1 DF, UNK

REACTIONS (4)
  - Hypoglycaemia [Recovering/Resolving]
  - Asthenia [Recovering/Resolving]
  - Hyperhidrosis [Recovering/Resolving]
  - Drug interaction [Unknown]
